FAERS Safety Report 5160269-5 (Version None)
Quarter: 2006Q4

REPORT INFORMATION
  Report Type: 
  Country: None (occurrence: None)
  Receive Date: 20061120
  Receipt Date: 20061108
  Transmission Date: 20070319
  Serious: Yes (Hospitalization, Other)
  Sender: FDA-Public Use
  Company Number: 2006-00153

PATIENT
  Age: 57 Year
  Sex: Female
  Weight: 61.3 kg

DRUGS (7)
  1. VELCADE [Suspect]
     Indication: PANCREATIC CARCINOMA
     Dosage: 0.70 MG/M2 , INTRAVENOUS
     Route: 042
     Dates: start: 20050214, end: 20050224
  2. 17-ALLYLAMINOGELDANAMYCIN [Suspect]
     Indication: PANCREATIC CARCINOMA
     Dosage: 100.00 MG/M2 , INTRAVENOUS
     Route: 042
     Dates: start: 20050214, end: 20050224
  3. ANCEF [Concomitant]
  4. ESCITALOPRAM OXALATE [Concomitant]
  5. PROTONIX [Concomitant]
  6. SENNA [Concomitant]
  7. ZYPREXA [Concomitant]

REACTIONS (12)
  - ABDOMINAL PAIN [None]
  - ANEURYSM [None]
  - ASTHENIA [None]
  - CONFUSIONAL STATE [None]
  - DRUG TOXICITY [None]
  - ENCEPHALOPATHY [None]
  - FATIGUE [None]
  - LETHARGY [None]
  - MALAISE [None]
  - NAUSEA [None]
  - VASCULAR STENOSIS [None]
  - VOMITING [None]
